FAERS Safety Report 19112535 (Version 4)
Quarter: 2021Q3

REPORT INFORMATION
  Report Type: Report from Study
  Country: None (occurrence: JP)
  Receive Date: 20210408
  Receipt Date: 20210910
  Transmission Date: 20211014
  Serious: Yes (Hospitalization)
  Sender: FDA-Public Use
  Company Number: JP-ABBVIE-21K-087-3851614-00

PATIENT
  Sex: Female

DRUGS (2)
  1. DUODOPA [Suspect]
     Active Substance: CARBIDOPA\LEVODOPA
  2. DUODOPA [Suspect]
     Active Substance: CARBIDOPA\LEVODOPA
     Indication: PARKINSON^S DISEASE
     Route: 050
     Dates: start: 20200513

REACTIONS (15)
  - Fall [Recovered/Resolved]
  - Feeling abnormal [Recovered/Resolved]
  - Gait inability [Unknown]
  - Grip strength decreased [Not Recovered/Not Resolved]
  - Mobility decreased [Unknown]
  - Speech disorder [Unknown]
  - Pain in extremity [Unknown]
  - Stoma site extravasation [Unknown]
  - On and off phenomenon [Unknown]
  - Mobility decreased [Unknown]
  - Foreign body in throat [Unknown]
  - Incorrect dose administered [Unknown]
  - Feeling abnormal [Unknown]
  - Malaise [Unknown]
  - Fall [Unknown]

NARRATIVE: CASE EVENT DATE: 2020
